FAERS Safety Report 9694098 (Version 3)
Quarter: 2013Q4

REPORT INFORMATION
  Report Type: Spontaneous
  Country: US (occurrence: US)
  Receive Date: 20131118
  Receipt Date: 20131120
  Transmission Date: 20140711
  Serious: Yes (Other)
  Sender: FDA-Public Use
  Company Number: US-GILEAD-2013-0087354

PATIENT
  Age: 66 Year
  Sex: Female

DRUGS (12)
  1. LETAIRIS [Suspect]
     Indication: PULMONARY ARTERIAL HYPERTENSION
     Dosage: 10 MG, QD
     Dates: start: 20131023
  2. NIFEDIPINE [Suspect]
     Indication: PRODUCT USED FOR UNKNOWN INDICATION
  3. WARFARIN [Concomitant]
  4. ALBUTEROL                          /00139501/ [Concomitant]
  5. ADVAIR [Concomitant]
  6. PROCARDIA                          /00340701/ [Concomitant]
  7. LOSARTAN [Concomitant]
  8. FLOVENT [Concomitant]
  9. PROZAC [Concomitant]
  10. CRESTOR [Concomitant]
  11. VITAMIN D NOS [Concomitant]
  12. PRILOSEC                           /00661201/ [Concomitant]

REACTIONS (2)
  - Weight abnormal [Unknown]
  - Local swelling [Not Recovered/Not Resolved]
